FAERS Safety Report 24047972 (Version 1)
Quarter: 2024Q3

REPORT INFORMATION
  Report Type: Report from Study
  Country: CA (occurrence: CA)
  Receive Date: 20240703
  Receipt Date: 20240703
  Transmission Date: 20241016
  Serious: Yes (Other)
  Sender: HLS THERAPEUTICS
  Company Number: CA-HLS-202401580

PATIENT
  Age: 34 Year
  Sex: Male

DRUGS (1)
  1. CLOZARIL [Suspect]
     Active Substance: CLOZAPINE
     Indication: Product used for unknown indication
     Dosage: INITIATED ON A SLOW TITRATION OF CLOZAPINE. CLOZAPINE DISCONTINUED AT 125MG HS
     Route: 048
     Dates: start: 20240522

REACTIONS (4)
  - Chest pain [Recovered/Resolved]
  - C-reactive protein increased [Recovered/Resolved]
  - Troponin increased [Recovered/Resolved]
  - Fascicular block [Unknown]

NARRATIVE: CASE EVENT DATE: 20240613
